FAERS Safety Report 8828658 (Version 2)
Quarter: 2013Q3

REPORT INFORMATION
  Report Type: Spontaneous
  Country: FR (occurrence: FR)
  Receive Date: 20121005
  Receipt Date: 20130705
  Transmission Date: 20140515
  Serious: Yes (Life-Threatening, Hospitalization)
  Sender: FDA-Public Use
  Company Number: FR-BRISTOL-MYERS SQUIBB COMPANY-17009960

PATIENT
  Age: 75 Year
  Sex: Male

DRUGS (8)
  1. GLUCOPHAGE [Suspect]
     Dosage: STARTED 15 YRS BEFORE-ONG
     Route: 048
  2. COVERSYL [Suspect]
     Route: 048
     Dates: start: 2002, end: 20120412
  3. BIPRETERAX [Suspect]
     Route: 048
     Dates: start: 2002, end: 20120412
  4. TEMERIT [Suspect]
     Dosage: 5MG TAB?STARTED 15 YRS BEFORE-ONG
     Route: 048
  5. HYPERIUM [Suspect]
     Dosage: 1MG TAB?STARTED 15 YRS BEFORE-ONG
     Route: 048
  6. AMLOR [Suspect]
     Dosage: STARTED 15 YRS BEFORE-ONG
     Route: 048
  7. DIAMICRON [Suspect]
     Dosage: STARTED 15 YRS BEFORE-ONG
     Route: 048
  8. KARDEGIC [Suspect]
     Route: 048

REACTIONS (1)
  - Angioedema [Not Recovered/Not Resolved]
